FAERS Safety Report 9502963 (Version 3)
Quarter: 2013Q4

REPORT INFORMATION
  Report Type: Spontaneous
  Country: US (occurrence: US)
  Receive Date: 20130906
  Receipt Date: 20131209
  Transmission Date: 20140711
  Serious: Yes (Hospitalization, Other)
  Sender: FDA-Public Use
  Company Number: PHEH2013US012514

PATIENT
  Age: 62 Year
  Sex: Male

DRUGS (3)
  1. CLOZARIL [Suspect]
     Indication: PSYCHOTIC DISORDER
     Dosage: UNK
  2. CLOZARIL [Suspect]
     Dosage: 300 MG, BID
     Route: 048
  3. CLOZARIL [Suspect]
     Dosage: 150 MG, BID
     Route: 048

REACTIONS (6)
  - Urinary tract infection [Recovering/Resolving]
  - Pyrexia [Recovering/Resolving]
  - Meningitis aseptic [Recovering/Resolving]
  - Delirium [Recovering/Resolving]
  - Antipsychotic drug level increased [Recovering/Resolving]
  - Full blood count abnormal [Recovering/Resolving]
